FAERS Safety Report 16153112 (Version 2)
Quarter: 2019Q2

REPORT INFORMATION
  Report Type: Spontaneous
  Country: US (occurrence: US)
  Receive Date: 20190403
  Receipt Date: 20190503
  Transmission Date: 20190711
  Serious: No
  Sender: FDA-Public Use
  Company Number: US-ASTRAZENECA-2019SE37910

PATIENT
  Sex: Male
  Weight: 86.2 kg

DRUGS (5)
  1. TRULICITY [Concomitant]
     Active Substance: DULAGLUTIDE
  2. LINZESS [Concomitant]
     Active Substance: LINACLOTIDE
     Indication: CONSTIPATION
     Dosage: UNKNOWN
     Route: 065
  3. BYDUREON BCISE [Suspect]
     Active Substance: EXENATIDE
     Indication: TYPE 2 DIABETES MELLITUS
     Route: 058
     Dates: start: 2019
  4. BYDUREON [Suspect]
     Active Substance: EXENATIDE
     Indication: TYPE 2 DIABETES MELLITUS
     Route: 058
  5. NEOSPORIN [Concomitant]
     Active Substance: BACITRACIN ZINC\NEOMYCIN SULFATE\POLYMYXIN B SULFATE

REACTIONS (8)
  - Injection site pruritus [Unknown]
  - Wrong technique in product usage process [Unknown]
  - Device issue [Unknown]
  - Somnolence [Not Recovered/Not Resolved]
  - Injection site swelling [Unknown]
  - Malaise [Unknown]
  - Product dose omission [Recovered/Resolved]
  - Injection site pain [Unknown]
